FAERS Safety Report 23761609 (Version 1)
Quarter: 2024Q2

REPORT INFORMATION
  Report Type: Spontaneous
  Country: CN (occurrence: CN)
  Receive Date: 20240419
  Receipt Date: 20240419
  Transmission Date: 20240716
  Serious: Yes (Hospitalization)
  Sender: FDA-Public Use
  Company Number: CN-SA-SAC20240418000484

PATIENT
  Age: 48 Year
  Sex: Male
  Weight: 75 kg

DRUGS (4)
  1. CLOPIDOGREL BISULFATE [Suspect]
     Active Substance: CLOPIDOGREL BISULFATE
     Indication: Platelet aggregation increased
     Dosage: 75 MG QD
     Route: 048
     Dates: start: 20240324, end: 20240405
  2. ASPIRIN [Suspect]
     Active Substance: ASPIRIN
     Indication: Antiplatelet therapy
     Dosage: 100 MG QD
     Route: 048
     Dates: start: 20240324, end: 20240405
  3. IODIXANOL [Suspect]
     Active Substance: IODIXANOL
     Indication: Angiogram
     Dosage: 64 G, QD
     Dates: start: 20240324, end: 20240324
  4. NADROPARIN CALCIUM [Concomitant]
     Active Substance: NADROPARIN CALCIUM
     Dosage: UNK

REACTIONS (6)
  - Ecchymosis [Recovering/Resolving]
  - Petechiae [Recovering/Resolving]
  - Rash pruritic [Recovering/Resolving]
  - Henoch-Schonlein purpura [Recovering/Resolving]
  - Rash [Recovering/Resolving]
  - Erythema [Recovering/Resolving]

NARRATIVE: CASE EVENT DATE: 20240328
